FAERS Safety Report 8226852-5 (Version None)
Quarter: 2012Q1

REPORT INFORMATION
  Report Type: 
  Country: None (occurrence: None)
  Receive Date: 20120322
  Receipt Date: 20120319
  Transmission Date: 20120608
  Serious: Yes (Hospitalization)
  Sender: FDA-Public Use
  Company Number: US-BAYER-2012-010799

PATIENT
  Age: 43 Year
  Sex: Female
  Weight: 82 kg

DRUGS (7)
  1. CYMBALTA [Concomitant]
     Dosage: UNK UNK, QD
  2. TOPAMAX [Concomitant]
     Indication: MIGRAINE
     Dosage: 50 MG, BID
  3. DOXEPIN HCL [Concomitant]
     Indication: MUSCLE CONTRACTURE
     Dosage: UNK UNK, QD
  4. BETASERON [Suspect]
     Indication: MULTIPLE SCLEROSIS
     Dosage: UNK UNK, QOD
     Route: 058
     Dates: start: 20111223, end: 20120201
  5. BETASERON [Suspect]
  6. BETASERON [Suspect]
     Dosage: UNK, QOD
     Route: 058
  7. PROAIR HFA [Concomitant]

REACTIONS (3)
  - MALAISE [None]
  - PNEUMONIA [None]
  - IMMUNODEFICIENCY [None]
